FAERS Safety Report 4582615-3 (Version None)
Quarter: 2005Q1

REPORT INFORMATION
  Report Type: 
  Country: None (occurrence: None)
  Receive Date: 20050211
  Receipt Date: 20050211
  Transmission Date: 20050727
  Serious: Yes (Death)
  Sender: FDA-Public Use
  Company Number: None

PATIENT
  Age: 65 Year
  Sex: Male
  Weight: 74.8435 kg

DRUGS (17)
  1. ARANESP [Suspect]
     Indication: RENAL FAILURE CHRONIC
     Dates: start: 20041019, end: 20041026
  2. LABETALOL HCL [Concomitant]
  3. ASPIRIN [Concomitant]
  4. HEPARIN [Concomitant]
  5. ALDOMET [Concomitant]
  6. RENAGEL [Concomitant]
  7. NEPHROVITE [Concomitant]
  8. HYDRALAZINE [Concomitant]
  9. POTASSIUM CHLORIDE [Concomitant]
  10. K-DUR 10 [Concomitant]
  11. LASIX [Concomitant]
  12. HUMALOG [Concomitant]
  13. LANTUS [Concomitant]
  14. MAGNESIUM OXIDE [Concomitant]
  15. EFFEXOR XR [Concomitant]
  16. ELAVIL [Concomitant]
  17. NEURONTIN [Concomitant]

REACTIONS (2)
  - CARDIAC ARREST [None]
  - PULMONARY EMBOLISM [None]
